FAERS Safety Report 5839680-2 (Version None)
Quarter: 2008Q3

REPORT INFORMATION
  Report Type: 
  Country: None (occurrence: None)
  Receive Date: 20080811
  Receipt Date: 20080807
  Transmission Date: 20090109
  Serious: Yes (Death, Other)
  Sender: FDA-Public Use
  Company Number: PHHO2002CA06186

PATIENT
  Sex: Male
  Weight: 97 kg

DRUGS (3)
  1. NEORAL [Suspect]
     Indication: HEART TRANSPLANT
     Dosage: 50 MG, BID
     Route: 048
     Dates: start: 19990829
  2. AZATHIOPRINE COMP-AZA+ [Suspect]
     Indication: HEART TRANSPLANT
     Dosage: UNK
     Route: 048
     Dates: start: 20010918, end: 20020507
  3. AZATHIOPRINE [Suspect]
     Indication: HEART TRANSPLANT
     Dosage: 150MG, DAILY
     Route: 048
     Dates: start: 20020508, end: 20020430

REACTIONS (3)
  - DISEASE PROGRESSION [None]
  - MALIGNANT TUMOUR EXCISION [None]
  - SQUAMOUS CELL CARCINOMA [None]
